FAERS Safety Report 14917931 (Version 1)
Quarter: 2018Q2

REPORT INFORMATION
  Report Type: Spontaneous
  Country: FR (occurrence: FR)
  Receive Date: 20180521
  Receipt Date: 20180521
  Transmission Date: 20180711
  Serious: Yes (Other)
  Sender: FDA-Public Use
  Company Number: FR-MERCK KGAA-2048105

PATIENT
  Age: 29 Year
  Sex: Female
  Weight: 50 kg

DRUGS (2)
  1. SEROPLEX [Concomitant]
     Active Substance: ESCITALOPRAM OXALATE
     Dates: start: 201712
  2. NOVOTHYROX [Suspect]
     Active Substance: LEVOTHYROXINE SODIUM
     Indication: HYPOTHYROIDISM

REACTIONS (53)
  - Suicidal ideation [None]
  - Visual impairment [None]
  - Phobia [None]
  - Psychiatric symptom [None]
  - Ovarian disorder [None]
  - Poor peripheral circulation [None]
  - Anxiety [None]
  - Sensitisation [None]
  - Social anxiety disorder [None]
  - Angina pectoris [None]
  - Abdominal discomfort [None]
  - Stress [None]
  - Constipation [None]
  - Palpitations [None]
  - Mental impairment [None]
  - Hair disorder [None]
  - Pallor [None]
  - Claustrophobia [None]
  - Depression [None]
  - Insomnia [None]
  - Dyspepsia [None]
  - Disturbance in attention [None]
  - Muscle atrophy [None]
  - Auditory disorder [None]
  - Myalgia [None]
  - Acrophobia [None]
  - Urticaria [None]
  - Amnesia [None]
  - Mental disorder [None]
  - Dizziness [None]
  - Renal disorder [None]
  - Restless legs syndrome [None]
  - Pollakiuria [None]
  - Limb discomfort [None]
  - Loss of libido [None]
  - Abdominal pain upper [None]
  - Dyspnoea [None]
  - Irritability [None]
  - Aphasia [None]
  - Negative thoughts [None]
  - Muscle tightness [None]
  - Pain in extremity [None]
  - Decreased appetite [None]
  - Decreased activity [None]
  - Dry mouth [None]
  - Acne [None]
  - Tinnitus [None]
  - Gait disturbance [None]
  - Impaired work ability [None]
  - Loss of personal independence in daily activities [None]
  - Mean cell haemoglobin decreased [None]
  - Emotional distress [None]
  - Weight decreased [None]

NARRATIVE: CASE EVENT DATE: 201707
